FAERS Safety Report 5273676-7 (Version None)
Quarter: 2007Q1

REPORT INFORMATION
  Report Type: 
  Country: None (occurrence: None)
  Receive Date: 20070323
  Receipt Date: 20070312
  Transmission Date: 20070707
  Serious: Yes (Hospitalization)
  Sender: FDA-Public Use
  Company Number: US-SANOFI-SYNTHELABO-A03200702101

PATIENT
  Sex: Female

DRUGS (1)
  1. AMBIEN [Suspect]
     Indication: INSOMNIA
     Dosage: 5-10 MG UNK
     Route: 048
     Dates: start: 20000101, end: 20060501

REACTIONS (7)
  - AMNESIA [None]
  - CONTUSION [None]
  - EATING DISORDER [None]
  - FALL [None]
  - SKIN LACERATION [None]
  - SLEEP WALKING [None]
  - UPPER LIMB FRACTURE [None]
